FAERS Safety Report 13627955 (Version 1)
Quarter: 2017Q2

REPORT INFORMATION
  Report Type: Spontaneous
  Country: US (occurrence: US)
  Receive Date: 20170608
  Receipt Date: 20170608
  Transmission Date: 20170830
  Serious: No
  Sender: FDA-Public Use
  Company Number: US-PERRIGO-16US022883

PATIENT
  Age: 65 Year
  Sex: Male
  Weight: 86.17 kg

DRUGS (3)
  1. MINOXIDIL. [Suspect]
     Active Substance: MINOXIDIL
     Dosage: A LITTLE MORE THAN 1/2 CAPFUL, 1 TO 2 TIMES DAILY
     Route: 061
     Dates: start: 2015
  2. MINOXIDIL. [Suspect]
     Active Substance: MINOXIDIL
     Indication: ALOPECIA
     Dosage: A LITTLE MORE THAN 1/2 CAPFUL, 1 TO 2 TIMES DAILY
     Route: 061
     Dates: start: 20110428, end: 2015
  3. SIMVASTATIN. [Concomitant]
     Active Substance: SIMVASTATIN
     Indication: BLOOD CHOLESTEROL INCREASED
     Dosage: UNK
     Route: 065
     Dates: start: 2006

REACTIONS (4)
  - Incorrect dose administered [Not Recovered/Not Resolved]
  - Drug administered at inappropriate site [Not Recovered/Not Resolved]
  - Hair colour changes [Not Recovered/Not Resolved]
  - Inappropriate schedule of drug administration [Not Recovered/Not Resolved]

NARRATIVE: CASE EVENT DATE: 20110428
